FAERS Safety Report 9009163 (Version 1)
Quarter: 2013Q1

REPORT INFORMATION
  Report Type: Report from Study
  Country: CA (occurrence: CA)
  Receive Date: 20130111
  Receipt Date: 20130111
  Transmission Date: 20140127
  Serious: Yes (Other)
  Sender: FDA-Public Use
  Company Number: CA-ROCHE-1175965

PATIENT
  Sex: 0

DRUGS (3)
  1. ISOTRETINOIN [Suspect]
     Indication: GLIOBLASTOMA
     Dosage: DAYS 1-21 OF EACH CYCLE
     Route: 065
  2. TEMOZOLOMIDE [Suspect]
     Indication: GLIOBLASTOMA
     Route: 065
  3. TEMOZOLOMIDE [Suspect]
     Dosage: TDD: 150-200 MG/M2 ON DAYS 1-5 OF A 28-DAY CYCLE
     Route: 065

REACTIONS (8)
  - Thrombocytopenia [Unknown]
  - Neutropenia [Unknown]
  - Anaemia [Unknown]
  - Depression [Unknown]
  - Rash [Unknown]
  - Alanine aminotransferase increased [Unknown]
  - Blood bilirubin increased [Unknown]
  - Dry skin [Unknown]
